FAERS Safety Report 19628903 (Version 2)
Quarter: 2021Q4

REPORT INFORMATION
  Report Type: Report from Study
  Country: US (occurrence: US)
  Receive Date: 20210728
  Receipt Date: 20211101
  Transmission Date: 20220303
  Serious: No
  Sender: FDA-Public Use
  Company Number: US-KYOWAKIRIN-2021BKK012791

PATIENT

DRUGS (1)
  1. CRYSVITA [Suspect]
     Active Substance: BUROSUMAB-TWZA
     Indication: Hereditary hypophosphataemic rickets
     Dosage: UNK, EVERY 4 WEEKS
     Route: 065
     Dates: start: 20200915, end: 20210609

REACTIONS (2)
  - Root canal infection [Recovering/Resolving]
  - Weight decreased [Recovered/Resolved]
